FAERS Safety Report 16345469 (Version 1)
Quarter: 2019Q2

REPORT INFORMATION
  Report Type: Report from Study
  Country: CN (occurrence: CN)
  Receive Date: 20190523
  Receipt Date: 20190523
  Transmission Date: 20190711
  Serious: Yes (Hospitalization)
  Sender: FDA-Public Use
  Company Number: CN-AMGEN-CHNCT2019079913

PATIENT
  Age: 55 Year
  Sex: Male

DRUGS (8)
  1. SODIUM BICARBONATE. [Concomitant]
     Active Substance: SODIUM BICARBONATE
     Indication: METABOLIC ACIDOSIS
     Dosage: 4 DOSAGE FORM, BID
     Route: 048
     Dates: start: 2010
  2. FOLIC ACID ALMUS [Concomitant]
     Active Substance: FOLIC ACID
     Indication: ANAEMIA
     Dosage: 2 DOSAGE FORM, QD
     Route: 048
     Dates: start: 2011
  3. LEVOCARNITINE. [Concomitant]
     Active Substance: LEVOCARNITINE
     Indication: CARNITINE DEFICIENCY
     Dosage: 1 GRAM, 2 TIMES/WK
     Route: 042
     Dates: start: 2011
  4. CINACALCET HCL [Suspect]
     Active Substance: CINACALCET HYDROCHLORIDE
     Indication: HYPERPARATHYROIDISM SECONDARY
     Dosage: 25 MILLIGRAM, QD
     Route: 065
     Dates: start: 20180426
  5. CINACALCET HCL [Suspect]
     Active Substance: CINACALCET HYDROCHLORIDE
     Dosage: 25 MILLIGRAM, QD
     Route: 065
  6. CALCIUM ACETATE HYDROUS [Concomitant]
     Indication: HYPERPHOSPHATAEMIA
     Dosage: 2 DOSAGE FORM, TID
     Route: 048
     Dates: start: 2017
  7. CINACALCET HCL [Suspect]
     Active Substance: CINACALCET HYDROCHLORIDE
     Dosage: 50 MILLIGRAM, QD
     Route: 065
  8. CALCITRIOL. [Concomitant]
     Active Substance: CALCITRIOL
     Indication: CHRONIC KIDNEY DISEASE-MINERAL AND BONE DISORDER
     Dosage: 1 DOSAGE FORM, 2 TIMES/WK
     Route: 048
     Dates: start: 2015

REACTIONS (1)
  - Hyperparathyroidism secondary [Unknown]

NARRATIVE: CASE EVENT DATE: 20190415
